FAERS Safety Report 11798680 (Version 1)
Quarter: 2015Q4

REPORT INFORMATION
  Report Type: Report from Study
  Country: US (occurrence: US)
  Receive Date: 20151203
  Receipt Date: 20151203
  Transmission Date: 20160305
  Serious: No
  Sender: FDA-Public Use
  Company Number: US-AMGEN-USASL2015104789

PATIENT
  Age: 78 Year
  Sex: Female

DRUGS (3)
  1. LOVAZA [Concomitant]
     Active Substance: OMEGA-3-ACID ETHYL ESTERS
     Dosage: UNK
  2. REPATHA [Suspect]
     Active Substance: EVOLOCUMAB
     Indication: PRODUCT USED FOR UNKNOWN INDICATION
     Dosage: 140 MG, UNK
     Route: 065
     Dates: start: 201509
  3. CHROMIUM [Concomitant]
     Active Substance: CHROMIC CHLORIDE\CHROMIUM
     Dosage: UNK

REACTIONS (5)
  - Pain in extremity [Recovering/Resolving]
  - Musculoskeletal pain [Recovering/Resolving]
  - Arthralgia [Recovering/Resolving]
  - Neck pain [Recovering/Resolving]
  - Back pain [Recovering/Resolving]
